FAERS Safety Report 23700169 (Version 3)
Quarter: 2024Q3

REPORT INFORMATION
  Report Type: Report from Study
  Country: EG (occurrence: EG)
  Receive Date: 20240403
  Receipt Date: 20240712
  Transmission Date: 20241016
  Serious: Yes (Other)
  Sender: SANDOZ
  Company Number: EG-SANDOZ-SDZ2024EG032416

PATIENT
  Age: 10 Year
  Sex: Male
  Weight: 39 kg

DRUGS (15)
  1. NORDITROPIN [Suspect]
     Active Substance: SOMATROPIN
     Indication: Growth hormone deficiency
     Dosage: 1.2 MG, QD
     Route: 058
     Dates: start: 2022, end: 20220621
  2. OMNITROPE [Suspect]
     Active Substance: SOMATROPIN
     Indication: Blood growth hormone abnormal
     Dosage: FROM 1.2 MG/DAY TO 1.5/ MG/DAY
     Route: 058
     Dates: start: 20220621
  3. ANTINAL [Concomitant]
     Indication: Gastroenteritis viral
     Dosage: 5 CM, QID
     Route: 048
  4. APIDONE [Concomitant]
     Indication: Influenza
     Dosage: 7 CM, BID
     Route: 048
  5. APIDONE [Concomitant]
     Indication: Cough
  6. Cetal [Concomitant]
     Indication: Influenza
     Dosage: 5/2 OR 3 TIMES IN A DAY
     Route: 048
  7. ONDANSETRON HYDROCHLORIDE [Concomitant]
     Active Substance: ONDANSETRON HYDROCHLORIDE
     Indication: Influenza
     Dosage: 1 CM TAKE IT 1 OR 2 TIMES DAILY
     Route: 042
  8. ONDANSETRON HYDROCHLORIDE [Concomitant]
     Active Substance: ONDANSETRON HYDROCHLORIDE
     Indication: Vomiting
  9. BUTYLSCOPOLAMINE BROMIDE [Concomitant]
     Active Substance: BUTYLSCOPOLAMINE BROMIDE
     Indication: Influenza
     Dosage: 5 CM, QID
     Route: 048
  10. BUTYLSCOPOLAMINE BROMIDE [Concomitant]
     Active Substance: BUTYLSCOPOLAMINE BROMIDE
     Indication: Cough
  11. METRONIDAZOLE [Concomitant]
     Active Substance: METRONIDAZOLE
     Indication: Gastroenteritis viral
     Dosage: 2 DF, QD
     Route: 048
  12. OPLEX [Concomitant]
     Indication: Influenza
     Dosage: 5 CM, QID
     Route: 048
  13. PANADOL [Concomitant]
     Active Substance: ACETAMINOPHEN
     Indication: Influenza
     Dosage: WHEN NEEDED
     Route: 065
  14. PANADOL [Concomitant]
     Active Substance: ACETAMINOPHEN
     Indication: Pain
  15. HIRUDIN [Concomitant]
     Active Substance: HIRUDIN
     Indication: Swelling
     Dosage: I TIME WHEN  NEEDED ONLY  DURING USING  INSULIN SYRINGE
     Route: 061
     Dates: start: 202204, end: 20220621

REACTIONS (19)
  - Injection site haemorrhage [Not Recovered/Not Resolved]
  - Growth retardation [Not Recovered/Not Resolved]
  - Pain in extremity [Unknown]
  - Skin discolouration [Unknown]
  - Influenza [Recovering/Resolving]
  - Asphyxia [Unknown]
  - Lacrimation increased [Unknown]
  - Insomnia [Unknown]
  - Abdominal pain upper [Unknown]
  - Vomiting [Unknown]
  - Injection site pain [Recovered/Resolved]
  - Product availability issue [Unknown]
  - Medication error [Not Recovered/Not Resolved]
  - Off label use [Unknown]
  - Wrong device used [Unknown]
  - Wrong technique in product usage process [Unknown]
  - Product dose omission issue [Unknown]
  - Device breakage [Unknown]
  - Wrong technique in product usage process [Unknown]

NARRATIVE: CASE EVENT DATE: 20220621
